FAERS Safety Report 18431702 (Version 3)
Quarter: 2021Q3

REPORT INFORMATION
  Report Type: Report from Study
  Country: JP (occurrence: JP)
  Receive Date: 20201027
  Receipt Date: 20210715
  Transmission Date: 20211014
  Serious: Yes (Death, Hospitalization, Other)
  Sender: FDA-Public Use
  Company Number: JP-ASTRAZENECA-2020SF37613

PATIENT
  Age: 76 Year
  Sex: Male

DRUGS (1)
  1. IMFINZI [Suspect]
     Active Substance: DURVALUMAB
     Indication: NON-SMALL CELL LUNG CANCER
     Route: 041
     Dates: start: 20190919, end: 20191003

REACTIONS (6)
  - Immune thrombocytopenia [Recovered/Resolved]
  - Malignant neoplasm progression [Unknown]
  - Pulmonary tuberculosis [Unknown]
  - Disease recurrence [Fatal]
  - Radiation pneumonitis [Not Recovered/Not Resolved]
  - Helicobacter infection [Unknown]

NARRATIVE: CASE EVENT DATE: 20191017
